FAERS Safety Report 10627436 (Version 1)
Quarter: 2014Q4

REPORT INFORMATION
  Report Type: Spontaneous
  Country: US (occurrence: US)
  Receive Date: 20141205
  Receipt Date: 20141205
  Transmission Date: 20150529
  Serious: Yes (Hospitalization, Other)
  Sender: FDA-Public Use
  Company Number: US-AUROBINDO-AUR-APL-2014-12711

PATIENT
  Age: 14 Year
  Sex: Female

DRUGS (9)
  1. IBUPROFEN. [Suspect]
     Active Substance: IBUPROFEN
     Indication: OROPHARYNGEAL PAIN
  2. AMOXICILLIN. [Suspect]
     Active Substance: AMOXICILLIN
     Indication: OROPHARYNGEAL PAIN
  3. PSEUDOEPHEDRINE                    /00076302/ [Suspect]
     Active Substance: PSEUDOEPHEDRINE
     Indication: MALAISE
  4. AMOXICILLIN. [Suspect]
     Active Substance: AMOXICILLIN
     Indication: MALAISE
  5. IBUPROFEN. [Suspect]
     Active Substance: IBUPROFEN
     Indication: MALAISE
  6. AMOXICILLIN. [Suspect]
     Active Substance: AMOXICILLIN
     Indication: COUGH
     Dosage: UNK
     Route: 065
  7. PSEUDOEPHEDRINE                    /00076302/ [Suspect]
     Active Substance: PSEUDOEPHEDRINE
     Indication: OROPHARYNGEAL PAIN
  8. IBUPROFEN. [Suspect]
     Active Substance: IBUPROFEN
     Indication: COUGH
     Dosage: UNK
     Route: 065
  9. PSEUDOEPHEDRINE /00076302/ [Suspect]
     Active Substance: PSEUDOEPHEDRINE
     Indication: COUGH
     Dosage: UNK
     Route: 065

REACTIONS (16)
  - Blood creatine increased [Recovered/Resolved]
  - Malaise [Recovered/Resolved]
  - Arthralgia [Recovered/Resolved]
  - Lymphadenopathy [Recovered/Resolved]
  - Hypotension [Recovered/Resolved]
  - Rash erythematous [Recovered/Resolved]
  - Lethargy [Recovered/Resolved]
  - Thrombocytopenia [Recovered/Resolved]
  - Mental status changes [Recovered/Resolved]
  - Drug reaction with eosinophilia and systemic symptoms [Recovered/Resolved]
  - Eosinophilia [Recovered/Resolved]
  - Lymphocytosis [Recovered/Resolved]
  - Haemolytic anaemia [Recovered/Resolved]
  - Leukocytosis [Recovered/Resolved]
  - Pyrexia [Recovered/Resolved]
  - Dyspnoea [Recovered/Resolved]
